FAERS Safety Report 12305546 (Version 1)
Quarter: 2016Q2

REPORT INFORMATION
  Report Type: Spontaneous
  Country: BE (occurrence: BE)
  Receive Date: 20160426
  Receipt Date: 20160426
  Transmission Date: 20160815
  Serious: Yes (Other)
  Sender: FDA-Public Use
  Company Number: BE-BAYER-2016-075158

PATIENT
  Sex: Male

DRUGS (1)
  1. NEXAVAR [Suspect]
     Active Substance: SORAFENIB
     Indication: METASTASES TO LIVER
     Dosage: UNK
     Dates: start: 20110713, end: 201110

REACTIONS (1)
  - Metastases to liver [None]

NARRATIVE: CASE EVENT DATE: 20111021
